FAERS Safety Report 25605162 (Version 1)
Quarter: 2025Q3

REPORT INFORMATION
  Report Type: Spontaneous
  Country: AZ (occurrence: AZ)
  Receive Date: 20250725
  Receipt Date: 20250725
  Transmission Date: 20251021
  Serious: Yes (Death, Hospitalization, Other)
  Sender: TAKEDA
  Company Number: AZ-EVENT-003674

PATIENT
  Age: 47 Year
  Sex: Female

DRUGS (1)
  1. ICLUSIG [Suspect]
     Active Substance: PONATINIB HYDROCHLORIDE
     Indication: Philadelphia positive acute lymphocytic leukaemia

REACTIONS (2)
  - Agonal death struggle [Fatal]
  - Septic shock [Fatal]

NARRATIVE: CASE EVENT DATE: 20250410
